FAERS Safety Report 10632840 (Version 1)
Quarter: 2014Q4

REPORT INFORMATION
  Report Type: Spontaneous
  Country: US (occurrence: US)
  Receive Date: 20141205
  Receipt Date: 20141205
  Transmission Date: 20150529
  Serious: No
  Sender: FDA-Public Use
  Company Number: US-BRISTOL-MYERS SQUIBB COMPANY-21312772

PATIENT
  Age: 42 Year
  Sex: Female
  Weight: 54.42 kg

DRUGS (1)
  1. ORENCIA [Suspect]
     Active Substance: ABATACEPT
     Indication: RHEUMATOID ARTHRITIS
     Dosage: LAST INJECTION :08AUG2014.
     Route: 058
     Dates: start: 201405

REACTIONS (3)
  - Breast pain [Unknown]
  - Breast disorder [Unknown]
  - Muscle spasms [Unknown]
